FAERS Safety Report 5334330-6 (Version None)
Quarter: 2007Q2

REPORT INFORMATION
  Report Type: 
  Country: None (occurrence: None)
  Receive Date: 20070525
  Receipt Date: 20060522
  Transmission Date: 20071010
  Serious: No
  Sender: FDA-Public Use
  Company Number: US-BRISTOL-MYERS SQUIBB COMPANY-13385547

PATIENT
  Age: 48 Year
  Sex: Female
  Weight: 66 kg

DRUGS (3)
  1. CYTOXAN [Suspect]
     Indication: NEUROMYELITIS OPTICA
     Route: 042
     Dates: start: 20060201, end: 20060301
  2. RITUXAN [Concomitant]
  3. EFFEXOR [Concomitant]

REACTIONS (1)
  - ALOPECIA [None]
